FAERS Safety Report 23658406 (Version 1)
Quarter: 2024Q1

REPORT INFORMATION
  Report Type: Spontaneous
  Country: US (occurrence: US)
  Receive Date: 20240321
  Receipt Date: 20240321
  Transmission Date: 20240410
  Serious: Yes (Hospitalization)
  Sender: FDA-Public Use
  Company Number: US-EXELA PHARMA SCIENCES, LLC-2024EXL00006

PATIENT
  Age: 60 Year
  Sex: Female

DRUGS (2)
  1. TRANEXAMIC ACID [Suspect]
     Active Substance: TRANEXAMIC ACID
     Dosage: NEBULIZED
  2. ASPIRIN [Concomitant]
     Active Substance: ASPIRIN
     Indication: Coronary artery disease
     Dosage: 81 MG, 1X/DAY

REACTIONS (6)
  - Haemoptysis [Recovered/Resolved]
  - Dyspnoea [Recovered/Resolved]
  - Thrombosis [Recovered/Resolved]
  - Oxygen saturation decreased [Recovered/Resolved]
  - Unresponsive to stimuli [Recovered/Resolved]
  - Thrombosis [Recovered/Resolved]
